FAERS Safety Report 16027037 (Version 1)
Quarter: 2019Q1

REPORT INFORMATION
  Report Type: Spontaneous
  Country: US (occurrence: US)
  Receive Date: 20190303
  Receipt Date: 20190303
  Transmission Date: 20190418
  Serious: No
  Sender: FDA-Public Use
  Company Number: US-IMPAX LABORATORIES, LLC-2018-IPXL-00508

PATIENT
  Sex: Female
  Weight: 55 kg

DRUGS (2)
  1. RYTARY [Suspect]
     Active Substance: CARBIDOPA\LEVODOPA
     Indication: PARKINSON^S DISEASE
     Dosage: UNK
     Route: 065
  2. RYTARY [Suspect]
     Active Substance: CARBIDOPA\LEVODOPA
     Dosage: DECREASED DOSE, UNK
     Route: 065

REACTIONS (3)
  - Pain [Recovered/Resolved]
  - Drug intolerance [Recovered/Resolved]
  - Tremor [Recovered/Resolved]
